FAERS Safety Report 9503113 (Version 4)
Quarter: 2013Q4

REPORT INFORMATION
  Report Type: Spontaneous
  Country: JP (occurrence: JP)
  Receive Date: 20130906
  Receipt Date: 20131012
  Transmission Date: 20140711
  Serious: Yes (Life-Threatening, Hospitalization, Other)
  Sender: FDA-Public Use
  Company Number: JP-ASTRAZENECA-2013SE65188

PATIENT
  Age: 80 Year
  Sex: Male

DRUGS (6)
  1. ZOLADEX LA [Suspect]
     Indication: PROSTATE CANCER
     Route: 058
     Dates: start: 20130604, end: 20130604
  2. CASODEX [Suspect]
     Indication: PROSTATE CANCER
     Route: 048
     Dates: start: 20130528, end: 20130604
  3. ARTIST [Concomitant]
     Indication: HYPERTENSION
     Route: 048
  4. ONBREZ [Concomitant]
     Indication: EMPHYSEMA
     Route: 048
  5. SEREVENT [Concomitant]
     Route: 065
  6. FLUTIDE:DISKUS [Concomitant]
     Route: 055

REACTIONS (14)
  - Hypothyroidism [Recovering/Resolving]
  - Pneumonia [Unknown]
  - Somnolence [Recovered/Resolved]
  - Pituitary haemorrhage [Recovering/Resolving]
  - Gait disturbance [Unknown]
  - Fall [Unknown]
  - Hypoxia [Unknown]
  - Platelet count decreased [Recovered/Resolved]
  - Protein urine present [Recovered/Resolved]
  - Protein total decreased [Unknown]
  - Depressed level of consciousness [Unknown]
  - Back pain [Unknown]
  - Spinal compression fracture [Unknown]
  - Blood cortisol decreased [Recovering/Resolving]
